FAERS Safety Report 5452289-8 (Version None)
Quarter: 2007Q3

REPORT INFORMATION
  Report Type: 
  Country: None (occurrence: None)
  Receive Date: 20070912
  Receipt Date: 20070912
  Transmission Date: 20080115
  Serious: Yes (Other)
  Sender: FDA-Public Use
  Company Number: None

PATIENT
  Age: 38 Year
  Sex: Female

DRUGS (1)
  1. AVONEX [Suspect]
     Indication: MULTIPLE SCLEROSIS
     Dosage: 30 MCQ WEEKLY SQ
     Route: 058
     Dates: start: 20070607, end: 20070910

REACTIONS (3)
  - ARTHRALGIA [None]
  - CONTUSION [None]
  - INJECTION SITE HAEMORRHAGE [None]
